FAERS Safety Report 8045587-5 (Version None)
Quarter: 2012Q1

REPORT INFORMATION
  Report Type: 
  Country: None (occurrence: None)
  Receive Date: 20120113
  Receipt Date: 20120111
  Transmission Date: 20120608
  Serious: Yes (Hospitalization, Disabling)
  Sender: FDA-Public Use
  Company Number: US-MERCK-1107USA03611

PATIENT
  Age: 65 Year
  Sex: Female

DRUGS (5)
  1. SYNTHROID [Concomitant]
     Route: 065
     Dates: start: 20050101
  2. FOSAMAX [Suspect]
     Indication: OSTEOPOROSIS
     Route: 048
     Dates: start: 20060901, end: 20080501
  3. MAXZIDE [Concomitant]
     Indication: FLUID RETENTION
     Route: 065
     Dates: start: 20030101
  4. BONIVA [Suspect]
     Indication: OSTEOPOROSIS
     Route: 065
     Dates: start: 20080101, end: 20090901
  5. FOSAMAX [Suspect]
     Route: 048
     Dates: start: 20080501

REACTIONS (23)
  - DENTAL CARIES [None]
  - NASAL SEPTAL OPERATION [None]
  - JAW DISORDER [None]
  - ARTHROPATHY [None]
  - HYPERLIPIDAEMIA [None]
  - DIZZINESS [None]
  - BONE DISORDER [None]
  - GASTROOESOPHAGEAL REFLUX DISEASE [None]
  - HYPOTHYROIDISM [None]
  - DEPRESSION [None]
  - URINARY INCONTINENCE [None]
  - HAEMOLYTIC ANAEMIA [None]
  - DIABETES MELLITUS [None]
  - OSTEONECROSIS OF JAW [None]
  - GALLBLADDER DISORDER [None]
  - BLOOD CHOLESTEROL INCREASED [None]
  - OEDEMA PERIPHERAL [None]
  - SPLEEN DISORDER [None]
  - ARTHRITIS [None]
  - BUNION [None]
  - CONSTIPATION [None]
  - RASH [None]
  - CATARACT [None]
